FAERS Safety Report 17434375 (Version 1)
Quarter: 2020Q1

REPORT INFORMATION
  Report Type: Spontaneous
  Country: GB (occurrence: GB)
  Receive Date: 20200219
  Receipt Date: 20200219
  Transmission Date: 20200409
  Serious: Yes (Disabling, Other)
  Sender: FDA-Public Use
  Company Number: GB-SA-2016SA216714

PATIENT
  Age: 71 Year
  Sex: Male
  Weight: 68 kg

DRUGS (6)
  1. TAMSULOSIN HYDROCHLORIDE. [Suspect]
     Active Substance: TAMSULOSIN HYDROCHLORIDE
     Indication: PROSTATOMEGALY
     Dosage: 400 UG,QD (IN THE MORNING)
     Route: 048
     Dates: start: 2010
  2. LATANOPROST. [Concomitant]
     Active Substance: LATANOPROST
     Indication: PRODUCT USED FOR UNKNOWN INDICATION
     Dosage: 50 UG,(LEFT EYE)
     Route: 047
  3. LORATADINE. [Concomitant]
     Active Substance: LORATADINE
     Indication: PRODUCT USED FOR UNKNOWN INDICATION
     Dosage: 10 MG,UNK
     Route: 065
  4. ALENDRONIC ACID [Concomitant]
     Active Substance: ALENDRONIC ACID
     Indication: PRODUCT USED FOR UNKNOWN INDICATION
     Dosage: 70 MG,UNK
     Route: 065
  5. CARBOMER [Concomitant]
     Active Substance: CARBOMER
     Indication: PRODUCT USED FOR UNKNOWN INDICATION
     Dosage: 10 G,UNK (RIGHT EYE WHICH NOW HAS NO LENS.)
     Route: 047
  6. PINEXEL PR [Concomitant]
     Indication: PRODUCT USED FOR UNKNOWN INDICATION
     Dosage: PINEXEL PR 400
     Route: 065

REACTIONS (2)
  - Blindness unilateral [Not Recovered/Not Resolved]
  - Pupillary reflex impaired [Unknown]
